FAERS Safety Report 12554139 (Version 1)
Quarter: 2016Q3

REPORT INFORMATION
  Report Type: Spontaneous
  Country: CH (occurrence: CH)
  Receive Date: 20160713
  Receipt Date: 20160713
  Transmission Date: 20161109
  Serious: Yes (Hospitalization, Other)
  Sender: FDA-Public Use
  Company Number: CH-ASTRAZENECA-2016SE73299

PATIENT
  Age: 17494 Day
  Sex: Male
  Weight: 90 kg

DRUGS (5)
  1. PANTOZOL [Concomitant]
     Active Substance: PANTOPRAZOLE SODIUM
     Route: 048
     Dates: end: 20160614
  2. IRFEN [Suspect]
     Active Substance: IBUPROFEN
     Indication: BACK PAIN
     Route: 048
     Dates: start: 201602, end: 20160614
  3. COSENTYX [Suspect]
     Active Substance: SECUKINUMAB
     Indication: SPONDYLITIS
     Route: 058
     Dates: start: 20160531
  4. COSENTYX [Suspect]
     Active Substance: SECUKINUMAB
     Indication: SPONDYLITIS
     Route: 058
     Dates: start: 20160607
  5. CRESTOR [Suspect]
     Active Substance: ROSUVASTATIN CALCIUM
     Indication: HYPERCHOLESTEROLAEMIA
     Route: 048

REACTIONS (5)
  - Pancreatitis necrotising [Recovering/Resolving]
  - Portal vein thrombosis [Unknown]
  - Steatohepatitis [Unknown]
  - Off label use [Recovered/Resolved]
  - Splenic thrombosis [Unknown]

NARRATIVE: CASE EVENT DATE: 20160531
